FAERS Safety Report 16380031 (Version 2)
Quarter: 2019Q3

REPORT INFORMATION
  Report Type: Report from Study
  Country: US (occurrence: US)
  Receive Date: 20190531
  Receipt Date: 20190716
  Transmission Date: 20191004
  Serious: No
  Sender: FDA-Public Use
  Company Number: US-009507513-1905USA005674

PATIENT
  Sex: Female

DRUGS (1)
  1. IMPLANON [Suspect]
     Active Substance: ETONOGESTREL
     Indication: CONTRACEPTION
     Dosage: 1 IMPLANT
     Route: 059

REACTIONS (4)
  - Device deployment issue [Recovered/Resolved]
  - Implant site cellulitis [Recovered/Resolved]
  - Implant site infection [Recovered/Resolved]
  - Complication associated with device [Recovered/Resolved]
